FAERS Safety Report 17570655 (Version 1)
Quarter: 2020Q1

REPORT INFORMATION
  Report Type: Spontaneous
  Country: SE (occurrence: SE)
  Receive Date: 20200323
  Receipt Date: 20200323
  Transmission Date: 20200409
  Serious: Yes (Other)
  Sender: FDA-Public Use
  Company Number: SE-JNJFOC-20200323746

PATIENT
  Age: 61 Year
  Sex: Female

DRUGS (2)
  1. IPREN TABLETS 400MG PR-009217 [Suspect]
     Active Substance: IBUPROFEN
     Indication: GLOSSODYNIA
  2. IPREN TABLETS 400MG PR-009217 [Suspect]
     Active Substance: IBUPROFEN
     Indication: VOCAL CORD INFLAMMATION
     Route: 048
     Dates: start: 20200225, end: 20200301

REACTIONS (1)
  - Aphthous ulcer [Not Recovered/Not Resolved]

NARRATIVE: CASE EVENT DATE: 20200301
